FAERS Safety Report 8175432-9 (Version None)
Quarter: 2012Q1

REPORT INFORMATION
  Report Type: 
  Country: None (occurrence: None)
  Receive Date: 20120229
  Receipt Date: 20120221
  Transmission Date: 20120608
  Serious: Yes (Hospitalization)
  Sender: FDA-Public Use
  Company Number: US-ASTRAZENECA-2010SE16054

PATIENT
  Age: 58 Year
  Sex: Female

DRUGS (1)
  1. SEROQUEL [Suspect]
     Indication: BIPOLAR DISORDER
     Dosage: TAKING THREE TIMES AT NIGHT BUT HER PRESCRIPTION IS WRITTEN FOR ONE TABLET BY MOUTH EVERY EIGHT HOUR
     Route: 048

REACTIONS (4)
  - INCORRECT DOSE ADMINISTERED [None]
  - MALAISE [None]
  - DRUG DOSE OMISSION [None]
  - DRUG WITHDRAWAL SYNDROME [None]
